FAERS Safety Report 8483164-2 (Version None)
Quarter: 2012Q3

REPORT INFORMATION
  Report Type: 
  Country: None (occurrence: None)
  Receive Date: 20120702
  Receipt Date: 20120628
  Transmission Date: 20120928
  Serious: Yes (Death)
  Sender: FDA-Public Use
  Company Number: VE-PFIZER INC-2012147456

PATIENT
  Age: 79 Year
  Sex: Female

DRUGS (5)
  1. PLAVIX [Concomitant]
     Dosage: 75 MG, UNK
     Route: 048
  2. CADUET [Suspect]
     Dosage: AMLODIPINE 5 MG/ ATORVASTATIN 40 MG, 1X/DAY
     Route: 048
     Dates: start: 20120301
  3. CARVEDILOL [Concomitant]
     Dosage: 12 MG, UNK
     Route: 048
  4. ASPIRIN [Concomitant]
     Dosage: 81 MG, UNK
     Route: 048
  5. ATACAND [Concomitant]
     Dosage: 16 MG, UNK
     Route: 048

REACTIONS (1)
  - RESPIRATORY ARREST [None]
